FAERS Safety Report 16171491 (Version 1)
Quarter: 2019Q2

REPORT INFORMATION
  Report Type: Spontaneous
  Country: NL (occurrence: NL)
  Receive Date: 20190408
  Receipt Date: 20190408
  Transmission Date: 20190711
  Serious: Yes (Hospitalization, Other)
  Sender: FDA-Public Use
  Company Number: NL-B.I. PHARMACEUTICALS,INC./RIDGEFIELD-2019-BI-014862

PATIENT
  Age: 97 Year
  Sex: Female

DRUGS (1)
  1. PRADAXA [Suspect]
     Active Substance: DABIGATRAN ETEXILATE MESYLATE
     Indication: PRODUCT USED FOR UNKNOWN INDICATION
     Route: 065
     Dates: start: 201712, end: 20180711

REACTIONS (16)
  - Condition aggravated [Recovering/Resolving]
  - Blood pressure fluctuation [Unknown]
  - Nausea [Unknown]
  - Liver function test abnormal [Recovering/Resolving]
  - Condition aggravated [Unknown]
  - Anal haemorrhage [Unknown]
  - Adverse event [Unknown]
  - Condition aggravated [Recovering/Resolving]
  - Pruritus [Unknown]
  - Hepatic neoplasm [Unknown]
  - Skin disorder [Unknown]
  - Acne [Unknown]
  - Acne [Unknown]
  - Condition aggravated [Unknown]
  - Abdominal pain upper [Unknown]
  - Yellow skin [Unknown]

NARRATIVE: CASE EVENT DATE: 20171218
